FAERS Safety Report 8375484-7 (Version None)
Quarter: 2012Q2

REPORT INFORMATION
  Report Type: 
  Country: None (occurrence: None)
  Receive Date: 20120518
  Receipt Date: 20120518
  Transmission Date: 20120825
  Serious: Yes (Other)
  Sender: FDA-Public Use
  Company Number: None

PATIENT
  Sex: Female
  Weight: 69.4003 kg

DRUGS (1)
  1. ATORVASTATIN [Suspect]
     Dosage: 1 AT BEDTIME
     Dates: start: 20120103, end: 20120201

REACTIONS (4)
  - RASH MACULAR [None]
  - PRODUCT SUBSTITUTION ISSUE [None]
  - PRURITUS [None]
  - INSOMNIA [None]
